FAERS Safety Report 24785076 (Version 1)
Quarter: 2024Q4

REPORT INFORMATION
  Report Type: Spontaneous
  Country: US (occurrence: None)
  Receive Date: 20241226
  Receipt Date: 20241226
  Transmission Date: 20250115
  Serious: No
  Sender: Public
  Company Number: None

PATIENT
  Age: 30 Year
  Sex: Male
  Weight: 78.75 kg

DRUGS (4)
  1. SERTRALINE HYDROCHLORIDE [Suspect]
     Active Substance: SERTRALINE HYDROCHLORIDE
     Indication: Depression
     Dates: start: 20171231, end: 20220411
  2. SERTRALINE HYDROCHLORIDE [Suspect]
     Active Substance: SERTRALINE HYDROCHLORIDE
     Indication: Anxiety
  3. PRAMIPEXOLE [Suspect]
     Active Substance: PRAMIPEXOLE\PRAMIPEXOLE DIHYDROCHLORIDE
  4. AMPHETAMINE [Suspect]
     Active Substance: AMPHETAMINE

REACTIONS (6)
  - Sexual dysfunction [None]
  - Intentional product use issue [None]
  - Treatment noncompliance [None]
  - Anhedonia [None]
  - Blunted affect [None]
  - Decreased appetite [None]

NARRATIVE: CASE EVENT DATE: 20220414
